FAERS Safety Report 8313901-9 (Version None)
Quarter: 2012Q2

REPORT INFORMATION
  Report Type: 
  Country: None (occurrence: None)
  Receive Date: 20120426
  Receipt Date: 20120426
  Transmission Date: 20120825
  Serious: Yes (Other)
  Sender: FDA-Public Use
  Company Number: None

PATIENT
  Age: 61 Year
  Sex: Male
  Weight: 85.728 kg

DRUGS (2)
  1. ATORVASTATIN [Suspect]
     Indication: BLOOD CHOLESTEROL INCREASED
     Dosage: 1 TAB
     Route: 048
     Dates: start: 20120416, end: 20120425
  2. ATORVASTATIN [Concomitant]

REACTIONS (5)
  - ARTHRALGIA [None]
  - PAIN IN EXTREMITY [None]
  - FATIGUE [None]
  - DISCOMFORT [None]
  - BACK PAIN [None]
